FAERS Safety Report 20921534 (Version 1)
Quarter: 2022Q2

REPORT INFORMATION
  Report Type: Spontaneous
  Country: US (occurrence: US)
  Receive Date: 20220606
  Receipt Date: 20220606
  Transmission Date: 20220721
  Serious: No
  Sender: FDA-Public Use
  Company Number: US-RIGEL PHARMACEUTICALS, INC.-2021FOS000284

PATIENT
  Sex: Female
  Weight: 104.31 kg

DRUGS (12)
  1. TAVALISSE [Suspect]
     Active Substance: FOSTAMATINIB
     Indication: Immune thrombocytopenia
     Dosage: 150 MG, BID
     Route: 048
     Dates: start: 20210521
  2. TAVALISSE [Suspect]
     Active Substance: FOSTAMATINIB
     Dosage: 100 MG, BID
     Route: 048
     Dates: start: 202104, end: 20210521
  3. DICYCLOMINE CO [Concomitant]
     Indication: Product used for unknown indication
     Dosage: 10 MG, PRN
  4. ELIQUIS [Concomitant]
     Active Substance: APIXABAN
     Indication: Product used for unknown indication
     Dosage: 2.5 MG, BID
  5. LOSARTAN AND HYDROCHLOROTHIAZIDE [Concomitant]
     Active Substance: HYDROCHLOROTHIAZIDE\LOSARTAN POTASSIUM
     Indication: Product used for unknown indication
     Dosage: 100/12.5 MG, QD
     Dates: end: 20210601
  6. MAGNESIUM [Concomitant]
     Active Substance: MAGNESIUM
     Indication: Product used for unknown indication
     Dosage: 200 MG, QD
  7. OMEPRAZOLE [Concomitant]
     Active Substance: OMEPRAZOLE
     Indication: Product used for unknown indication
     Dosage: 40 MG, QD
  8. TAMOXIFEN [Concomitant]
     Active Substance: TAMOXIFEN
     Indication: Product used for unknown indication
     Dosage: 20 MG, QD
  9. TYLENOL [Concomitant]
     Active Substance: ACETAMINOPHEN
     Indication: Product used for unknown indication
     Dosage: UNK, PRN
  10. DOXYLAMINE SUCCINATE [Concomitant]
     Active Substance: DOXYLAMINE SUCCINATE
     Indication: Product used for unknown indication
     Dosage: UNK, PRN
  11. NPLATE [Concomitant]
     Active Substance: ROMIPLOSTIM
     Indication: Product used for unknown indication
     Dosage: UNK, WEEKLY
  12. PREDNISONE [Concomitant]
     Active Substance: PREDNISONE
     Indication: Product used for unknown indication
     Dosage: UNK, QD

REACTIONS (6)
  - Faeces soft [Unknown]
  - Headache [Not Recovered/Not Resolved]
  - Loss of personal independence in daily activities [Not Recovered/Not Resolved]
  - Therapeutic response unexpected [Unknown]
  - Dizziness [Not Recovered/Not Resolved]
  - Abdominal pain [Unknown]

NARRATIVE: CASE EVENT DATE: 20210101
